APPROVED DRUG PRODUCT: CLEOCIN
Active Ingredient: CLINDAMYCIN PHOSPHATE
Strength: EQ 2% BASE
Dosage Form/Route: CREAM;VAGINAL
Application: N050680 | Product #002 | TE Code: AB
Applicant: PFIZER INC
Approved: Mar 2, 1998 | RLD: Yes | RS: Yes | Type: RX